FAERS Safety Report 7776579-9 (Version None)
Quarter: 2011Q3

REPORT INFORMATION
  Report Type: 
  Country: None (occurrence: None)
  Receive Date: 20110919
  Receipt Date: 20110919
  Transmission Date: 20111222
  Serious: No
  Sender: FDA-Public Use
  Company Number: None

PATIENT
  Age: 84 Year
  Sex: Male

DRUGS (1)
  1. PROAIR HFA [Suspect]
     Indication: EMPHYSEMA
     Dosage: INHALE 2 PUFFS EVERY 4 TO 6 HOURS AS NEEDED

REACTIONS (2)
  - DEVICE MALFUNCTION [None]
  - DEVICE INEFFECTIVE [None]
